FAERS Safety Report 8765786 (Version 1)
Quarter: 2012Q4

REPORT INFORMATION
  Report Type: 
  Country: US (occurrence: US)
  Receive Date: 20120904
  Receipt Date: 20120904
  Transmission Date: 20130627
  Serious: No
  Sender: FDA-Public Use
  Company Number: US-PFIZER INC-2012214946

PATIENT
  Age: 76 Year
  Sex: Male
  Weight: 72.56 kg

DRUGS (2)
  1. NIFEDIPINE [Suspect]
     Indication: HYPERTENSION
     Dosage: 30 mg, daily
     Route: 048
     Dates: start: 2011
  2. COREG [Concomitant]
     Indication: VASCULAR GRAFT
     Dosage: 12.5 mg, 2x/day

REACTIONS (1)
  - Blood pressure increased [Not Recovered/Not Resolved]
